FAERS Safety Report 4885635-4 (Version None)
Quarter: 2005Q4

REPORT INFORMATION
  Report Type: 
  Country: None (occurrence: None)
  Receive Date: 20051220
  Receipt Date: 20050208
  Transmission Date: 20060501
  Serious: Yes (Other)
  Sender: FDA-Public Use
  Company Number: HQWYE208209FEB05

PATIENT
  Age: 68 Year
  Sex: Male
  Weight: 94.43 kg

DRUGS (12)
  1. EFFEXOR XR [Suspect]
     Indication: DEPRESSION
     Dosage: 150 MG 1X PER 1 DAY, ORAL; 150 MG 1X PER 1 DAY, ORAL
     Route: 048
     Dates: start: 20040801
  2. EFFEXOR XR [Suspect]
     Indication: DEPRESSION
     Dosage: 150 MG 1X PER 1 DAY, ORAL; 150 MG 1X PER 1 DAY, ORAL
     Route: 048
     Dates: start: 20040913
  3. PHENYTOIN [Concomitant]
  4. DIVALPROEX SODIUM [Concomitant]
  5. PHENOBARBITAL TAB [Concomitant]
  6. PANTOPRAZOLE SODIUM [Concomitant]
  7. ASCORBIC ACID [Concomitant]
  8. POLYSACCHARIDE-IRON COMPLEX (POLYSACCHARIDE-IRON COMPLEX) [Concomitant]
  9. CALCIUM CARBONATE (CALCIUM CARBONATE) [Concomitant]
  10. VITAMIN D [Concomitant]
  11. GLUCOSAMINE (GLUCOSAMINE) [Concomitant]
  12. MULTIVITAMINS, PLAIN (MULTIVITAMINS, PLAIN) [Concomitant]

REACTIONS (1)
  - NEUTROPENIA [None]
